FAERS Safety Report 23870444 (Version 1)
Quarter: 2024Q2

REPORT INFORMATION
  Report Type: Spontaneous
  Country: JP (occurrence: JP)
  Receive Date: 20240518
  Receipt Date: 20240518
  Transmission Date: 20240716
  Serious: Yes (Other)
  Sender: FDA-Public Use
  Company Number: None

PATIENT
  Age: 83 Year
  Sex: Female

DRUGS (2)
  1. BOTOX [Suspect]
     Active Substance: ONABOTULINUMTOXINA
     Indication: Facial spasm
     Dosage: TIME INTERVAL: AS NECESSARY: 17.5 IU, SINGLE
     Route: 030
     Dates: start: 20231111, end: 20231111
  2. BOTOX [Suspect]
     Active Substance: ONABOTULINUMTOXINA
     Indication: Facial spasm
     Dosage: TIME INTERVAL: AS NECESSARY: 10 IU, SINGLE
     Route: 030
     Dates: start: 20230909, end: 20230909

REACTIONS (5)
  - Cerebral atrophy [Unknown]
  - Facial paralysis [Recovered/Resolved]
  - Eyelid ptosis [Unknown]
  - Brain stem syndrome [Unknown]
  - White matter lesion [Unknown]

NARRATIVE: CASE EVENT DATE: 20231101
